FAERS Safety Report 6858376-1 (Version None)
Quarter: 2010Q3

REPORT INFORMATION
  Report Type: 
  Country: None (occurrence: None)
  Receive Date: 20100719
  Receipt Date: 20080207
  Transmission Date: 20110219
  Serious: No
  Sender: FDA-Public Use
  Company Number: US-PFIZER INC-2008012572

PATIENT
  Sex: Male
  Weight: 104.3 kg

DRUGS (1)
  1. CHANTIX [Suspect]
     Indication: SMOKING CESSATION THERAPY
     Dates: start: 20071201

REACTIONS (5)
  - HEAD DISCOMFORT [None]
  - MALAISE [None]
  - NAUSEA [None]
  - THINKING ABNORMAL [None]
  - VOMITING [None]
